FAERS Safety Report 14289775 (Version 1)
Quarter: 2017Q4

REPORT INFORMATION
  Report Type: Report from Study
  Country: US (occurrence: US)
  Receive Date: 20171214
  Receipt Date: 20171214
  Transmission Date: 20180321
  Serious: Yes (Other)
  Sender: FDA-Public Use
  Company Number: US-REGENERON PHARMACEUTICALS, INC.-2017-28726

PATIENT

DRUGS (1)
  1. EYLEA [Suspect]
     Active Substance: AFLIBERCEPT
     Indication: EYE SWELLING
     Dosage: UNK, ONE DOSE
     Route: 031
     Dates: start: 2017, end: 2017

REACTIONS (8)
  - Blood urine present [Unknown]
  - Vitreous floaters [Unknown]
  - Visual impairment [Unknown]
  - Renal cancer [Unknown]
  - Acne [Unknown]
  - Off label use [Unknown]
  - Urinary bladder polyp [Unknown]
  - Rash pruritic [Unknown]

NARRATIVE: CASE EVENT DATE: 2017
